FAERS Safety Report 10011917 (Version 2)
Quarter: 2014Q1

REPORT INFORMATION
  Report Type: Spontaneous
  Country: US (occurrence: None)
  Receive Date: 20140312
  Receipt Date: 20140327
  Transmission Date: 20141002
  Serious: Yes (Hospitalization)
  Sender: FDA-Public Use
  Company Number: US-000947

PATIENT
  Age: 22 Year
  Sex: Male

DRUGS (2)
  1. GATTEX [Suspect]
     Indication: SHORT-BOWEL SYNDROME
     Dosage: (0.26 ML QD, STRN/VOLUM: 0.26 ML /FREQU: ONCE A DAY
     Route: 058
     Dates: start: 201403
  2. SOLUTIONS FOR PARENTERAL NUTRITION [Concomitant]

REACTIONS (2)
  - White blood cell count increased [None]
  - Device related infection [None]
